FAERS Safety Report 8879499 (Version 1)
Quarter: 2012Q4

REPORT INFORMATION
  Report Type: Spontaneous
  Country: DK (occurrence: None)
  Receive Date: 20121025
  Receipt Date: 20121025
  Transmission Date: 20130627
  Serious: Yes (Congenital Anomaly)
  Sender: FDA-Public Use
  Company Number: 2012MA012666

PATIENT

DRUGS (2)
  1. CARBAMAZEPINE [Suspect]
     Indication: EPILEPSY
     Route: 064
  2. LAMOTRIGINE (LAMOTRIGINE) [Suspect]

REACTIONS (2)
  - Hip dysplasia [None]
  - Maternal drugs affecting foetus [None]
